FAERS Safety Report 9047490 (Version 1)
Quarter: 2013Q1

REPORT INFORMATION
  Report Type: Report from Study
  Country: US (occurrence: US)
  Receive Date: 20130201
  Receipt Date: 20130201
  Transmission Date: 20140127
  Serious: No
  Sender: FDA-Public Use
  Company Number: US-ABBOTT-12P-163-1009477-00

PATIENT
  Age: 59 Year
  Sex: Female

DRUGS (33)
  1. HUMIRA [Suspect]
     Indication: PSORIASIS
     Route: 058
     Dates: start: 20121025
  2. HUMIRA [Suspect]
     Route: 058
  3. VIIBYRD [Concomitant]
     Indication: DEPRESSION
  4. GLUCOPHAGE [Concomitant]
     Indication: DIABETES MELLITUS
  5. CLARITIN [Concomitant]
     Indication: HYPERSENSITIVITY
  6. LASIX [Concomitant]
     Indication: FLUID RETENTION
  7. LEVEMIR [Concomitant]
     Indication: DIABETES MELLITUS
  8. HUMALOG [Concomitant]
     Indication: DIABETES MELLITUS
     Dosage: BY SLIDING SCALE
  9. DILAUDID [Concomitant]
     Indication: PAIN
  10. DILAUDID [Concomitant]
     Indication: PAIN
  11. NORCO [Concomitant]
     Indication: DIABETIC NEUROPATHY
     Dosage: 7.5/325MG
  12. NORCO [Concomitant]
     Indication: DIABETIC NEUROPATHY
  13. CALCIPOTRIENE [Concomitant]
     Indication: PSORIASIS
  14. PRESERVISION EYE VITAMIN AND MINERAL SUPPL. [Concomitant]
     Indication: EYE DISORDER
  15. KETOCONAZOLE [Concomitant]
     Indication: PSORIASIS
     Dosage: CREAM
  16. CLOBETASOL [Concomitant]
     Indication: PRODUCT USED FOR UNKNOWN INDICATION
     Dosage: CREAM
  17. DEXAMETHASONE [Concomitant]
     Indication: PSORIASIS
     Dosage: CREAM
  18. MUPIROCIN [Concomitant]
     Indication: PSORIASIS
     Dosage: CREAM
  19. VALIUM [Concomitant]
     Indication: ANXIETY
  20. DICLOFENAC [Concomitant]
     Indication: ANALGESIC INTERVENTION SUPPORTIVE THERAPY
  21. NYSTATIN [Concomitant]
     Indication: PSORIASIS
  22. MYLANTA DOUBLE STRENGTH [Concomitant]
     Indication: PRODUCT USED FOR UNKNOWN INDICATION
  23. MILK OF MAGNESIA [Concomitant]
     Indication: PRODUCT USED FOR UNKNOWN INDICATION
  24. VITAMIN B12 [Concomitant]
     Indication: PRODUCT USED FOR UNKNOWN INDICATION
     Dosage: MONTHLY
  25. ICY HOT [Concomitant]
     Indication: ARTHROPATHY
  26. PREPARATION H [Concomitant]
     Indication: HAEMORRHOIDS
  27. MAGNESIUM [Concomitant]
     Indication: SUPPLEMENTATION THERAPY
  28. VIT D [Concomitant]
     Indication: PRODUCT USED FOR UNKNOWN INDICATION
  29. GABAPENTIN [Concomitant]
     Indication: DIABETIC NEUROPATHY
  30. BENADRYL [Concomitant]
     Indication: ANXIETY
     Dosage: AS NEEDED
  31. DIOVAN HCT [Concomitant]
     Indication: HYPERTENSION
     Dosage: 320-12.5MG DAILY
  32. FLONASE [Concomitant]
     Indication: HYPERSENSITIVITY
     Dosage: EACH NOSTRIL
  33. COLACE [Concomitant]
     Indication: CONSTIPATION PROPHYLAXIS

REACTIONS (6)
  - Nasal congestion [Not Recovered/Not Resolved]
  - Nasopharyngitis [Not Recovered/Not Resolved]
  - Rhinorrhoea [Not Recovered/Not Resolved]
  - Cough [Not Recovered/Not Resolved]
  - Fatigue [Not Recovered/Not Resolved]
  - Psoriasis [Not Recovered/Not Resolved]
